FAERS Safety Report 8115608-X (Version None)
Quarter: 2012Q1

REPORT INFORMATION
  Report Type: 
  Country: None (occurrence: None)
  Receive Date: 20120206
  Receipt Date: 20120131
  Transmission Date: 20120608
  Serious: No
  Sender: FDA-Public Use
  Company Number: US-PFIZER INC-2012027013

PATIENT
  Sex: Female
  Weight: 74.83 kg

DRUGS (5)
  1. CELEBREX [Suspect]
     Indication: OSTEOARTHRITIS
     Dosage: 200 MG, 1X/DAY
     Route: 048
     Dates: start: 20040101
  2. PRAVACHOL [Concomitant]
     Indication: KNEE ARTHROPLASTY
     Dosage: UNK
  3. NEXIUM [Concomitant]
     Indication: GASTROOESOPHAGEAL REFLUX DISEASE
     Dosage: UNK
  4. TRAMADOL [Concomitant]
     Indication: OSTEOARTHRITIS
     Dosage: UNK
  5. VITAMIN B COMPLEX CAP [Concomitant]
     Dosage: UNK

REACTIONS (3)
  - GASTROOESOPHAGEAL REFLUX DISEASE [None]
  - VITAMIN B COMPLEX DEFICIENCY [None]
  - ARTHROPATHY [None]
